FAERS Safety Report 16933661 (Version 3)
Quarter: 2020Q1

REPORT INFORMATION
  Report Type: Report from Study
  Country: None (occurrence: US)
  Receive Date: 20191018
  Receipt Date: 20200320
  Transmission Date: 20200409
  Serious: Yes (Other)
  Sender: FDA-Public Use
  Company Number: US-ABBVIE-19K-163-2931737-00

PATIENT
  Age: 44 Year
  Sex: Female

DRUGS (4)
  1. HUMIRA [Suspect]
     Active Substance: ADALIMUMAB
     Route: 058
  2. HUMIRA [Suspect]
     Active Substance: ADALIMUMAB
     Indication: RHEUMATOID ARTHRITIS
     Route: 058
  3. HUMIRA [Suspect]
     Active Substance: ADALIMUMAB
     Route: 058
  4. HUMIRA [Suspect]
     Active Substance: ADALIMUMAB
     Route: 058

REACTIONS (17)
  - Back disorder [Unknown]
  - Feeling abnormal [Unknown]
  - Musculoskeletal disorder [Unknown]
  - Nervous system disorder [Not Recovered/Not Resolved]
  - Menorrhagia [Unknown]
  - Hypoaesthesia [Unknown]
  - Condition aggravated [Unknown]
  - Pain [Unknown]
  - Chills [Unknown]
  - Arthropathy [Unknown]
  - Pyrexia [Unknown]
  - Gait disturbance [Unknown]
  - Paraesthesia [Unknown]
  - Frequent bowel movements [Unknown]
  - Cough [Unknown]
  - Therapeutic response shortened [Unknown]
  - Malaise [Unknown]

NARRATIVE: CASE EVENT DATE: 202002
